FAERS Safety Report 7339108-X (Version None)
Quarter: 2011Q1

REPORT INFORMATION
  Report Type: 
  Country: None (occurrence: None)
  Receive Date: 20110308
  Receipt Date: 20110302
  Transmission Date: 20110831
  Serious: No
  Sender: FDA-Public Use
  Company Number: US-TEVA-269665USA

PATIENT
  Sex: Female
  Weight: 56.75 kg

DRUGS (2)
  1. PLAN B ONE-STEP [Suspect]
     Indication: POST COITAL CONTRACEPTION
     Route: 048
     Dates: start: 20101201, end: 20101201
  2. UNKNOWN BREAST CANCER MEDICATION [Concomitant]
     Indication: BREAST CANCER
     Route: 048

REACTIONS (1)
  - MENSTRUATION IRREGULAR [None]
